FAERS Safety Report 21614209 (Version 1)
Quarter: 2022Q4

REPORT INFORMATION
  Report Type: Spontaneous
  Country: GR (occurrence: None)
  Receive Date: 20221118
  Receipt Date: 20221118
  Transmission Date: 20230113
  Serious: Yes (Hospitalization)
  Sender: FDA-Public Use
  Company Number: 2022A370411

PATIENT
  Age: 62 Year
  Sex: Male
  Weight: 80 kg

DRUGS (9)
  1. CRESTOR [Suspect]
     Active Substance: ROSUVASTATIN CALCIUM
     Indication: Hyperlipidaemia
     Dosage: 10.0MG UNKNOWN
     Route: 048
     Dates: start: 20191204, end: 20211028
  2. CRESTOR [Suspect]
     Active Substance: ROSUVASTATIN CALCIUM
     Indication: Coronary artery disease
     Dosage: 10.0MG UNKNOWN
     Route: 048
     Dates: start: 20191204, end: 20211028
  3. GLUCOSTOP [Concomitant]
     Indication: Diabetes mellitus
     Route: 065
     Dates: start: 20191130
  4. PANTOPRAZOLE SODIUM [Concomitant]
     Active Substance: PANTOPRAZOLE SODIUM
     Indication: Gastrooesophageal reflux prophylaxis
     Route: 048
     Dates: start: 20190101, end: 20211028
  5. ASPIRIN [Concomitant]
     Active Substance: ASPIRIN
     Route: 048
     Dates: start: 20191130
  6. BISOPROLOL FUMARATE [Concomitant]
     Active Substance: BISOPROLOL FUMARATE
     Indication: Coronary artery disease
     Route: 048
     Dates: start: 20191130
  7. RENITEC [Concomitant]
     Indication: Coronary artery disease
     Route: 048
     Dates: start: 20191130
  8. RENITEC [Concomitant]
     Indication: Hypertension
     Route: 048
     Dates: start: 20191130
  9. GLICLAZIDE [Concomitant]
     Active Substance: GLICLAZIDE
     Indication: Diabetes mellitus
     Route: 048
     Dates: start: 20191130

REACTIONS (2)
  - Rhabdomyolysis [Recovering/Resolving]
  - Hypercalcaemia [Recovering/Resolving]

NARRATIVE: CASE EVENT DATE: 20211028
